FAERS Safety Report 8477708 (Version 3)
Quarter: 2014Q2

REPORT INFORMATION
  Report Type: Spontaneous
  Country: US (occurrence: US)
  Receive Date: 20120327
  Receipt Date: 20140505
  Transmission Date: 20141212
  Serious: Yes (Other)
  Sender: FDA-Public Use
  Company Number: US-BAYER-2012-023411

PATIENT
  Age: 15 Year
  Sex: Female

DRUGS (2)
  1. BEYAZ [Suspect]
     Dosage: UNK
     Route: 048
     Dates: start: 2012
  2. BEYAZ [Suspect]

REACTIONS (5)
  - Expired product administered [None]
  - Gastroenteritis viral [None]
  - Vomiting [None]
  - Inappropriate schedule of drug administration [None]
  - Pharyngitis streptococcal [None]
